FAERS Safety Report 4945968-X (Version None)
Quarter: 2006Q1

REPORT INFORMATION
  Report Type: 
  Country: None (occurrence: None)
  Receive Date: 20060125
  Receipt Date: 20051011
  Transmission Date: 20060701
  Serious: No
  Sender: FDA-Public Use
  Company Number: US-JNJFOC-20051002696

PATIENT
  Age: 52 Year
  Sex: Female
  Weight: 106.5953 kg

DRUGS (8)
  1. ERTACZO [Suspect]
     Indication: TINEA PEDIS
     Dosage: TOPICAL
     Route: 061
     Dates: start: 20051010, end: 20051011
  2. COUMADIN [Concomitant]
  3. NEURONTIN [Concomitant]
  4. SYNTHROID [Concomitant]
  5. NASONEX [Concomitant]
  6. VICODIN [Concomitant]
  7. MULTIVITAMIN [Concomitant]
  8. CALCIUM (CALCIUM) [Concomitant]

REACTIONS (2)
  - BURNING SENSATION [None]
  - PRURITUS [None]
